FAERS Safety Report 5014870-X (Version None)
Quarter: 2006Q2

REPORT INFORMATION
  Report Type: 
  Country: None (occurrence: None)
  Receive Date: 20060412
  Receipt Date: 20050628
  Transmission Date: 20061013
  Serious: Yes (Life-Threatening, Hospitalization, Disabling, Congenital Anomaly, Other)
  Sender: FDA-Public Use
  Company Number: 2005-BP-04370BP

PATIENT
  Age: 87 Year
  Sex: Female
  Weight: 52 kg

DRUGS (11)
  1. MOBIC [Suspect]
     Indication: OSTEOARTHRITIS
     Dosage: 15 MG (15 MG), PO
     Route: 048
     Dates: start: 20041001, end: 20041101
  2. HYDROCHLOROTHIAZIDE [Concomitant]
  3. FOSAMAX [Concomitant]
  4. NORVASC [Concomitant]
  5. LIPTIOR (ATORVASTATIN CALCIUM) [Concomitant]
  6. LORCET-HD [Concomitant]
  7. LASIX [Concomitant]
  8. OSCAL (CALCIUM CARBONATE) [Concomitant]
  9. PROTONIX [Concomitant]
  10. TRANXENE [Concomitant]
  11. HALCION [Concomitant]

REACTIONS (1)
  - GASTROINTESTINAL HAEMORRHAGE [None]
